FAERS Safety Report 18559448 (Version 2)
Quarter: 2021Q1

REPORT INFORMATION
  Report Type: Spontaneous
  Country: SE (occurrence: SE)
  Receive Date: 20201130
  Receipt Date: 20210321
  Transmission Date: 20210419
  Serious: Yes (Hospitalization, Disabling)
  Sender: FDA-Public Use
  Company Number: SE-TEVA-2020-SE-1853106

PATIENT
  Age: 55 Year
  Sex: Female
  Weight: 65 kg

DRUGS (17)
  1. ALENDRONIC ACID [Suspect]
     Active Substance: ALENDRONIC ACID
     Indication: OSTEOPOROSIS
     Route: 048
     Dates: start: 20190101, end: 20200701
  2. OLUMINANT [Concomitant]
  3. ZOLPIDEM [Concomitant]
     Active Substance: ZOLPIDEM TARTRATE
  4. ATARAX [Concomitant]
     Active Substance: HYDROXYZINE HYDROCHLORIDE
  5. ESTRADOT [Concomitant]
     Active Substance: ESTRADIOL
  6. KALCIPOS?D FORTE [Concomitant]
     Active Substance: CALCIUM CARBONATE\CHOLECALCIFEROL
  7. CIRCADIN [Concomitant]
     Active Substance: MELATONIN
  8. VISCOTEARS OGONSALVA [Concomitant]
  9. TRAMADOL. [Concomitant]
     Active Substance: TRAMADOL
  10. HYDROKORTISON [Concomitant]
  11. AMLODIPIN [Concomitant]
     Active Substance: AMLODIPINE BESYLATE
  12. BION TEARS OGONDROPPAR [Concomitant]
  13. TERRACORTRIL MED POLYMYXIN B OGONDROPPAR [Concomitant]
  14. PROPAVAN [Concomitant]
     Active Substance: PROPIOMAZINE
  15. ALVEDON [Concomitant]
     Active Substance: ACETAMINOPHEN
  16. OCULENTUM SIMPLEX OGONSALVA [Concomitant]
  17. ORUDIS [Concomitant]
     Active Substance: KETOPROFEN

REACTIONS (1)
  - Femoral neck fracture [Not Recovered/Not Resolved]

NARRATIVE: CASE EVENT DATE: 20201024
